FAERS Safety Report 21722688 (Version 1)
Quarter: 2022Q4

REPORT INFORMATION
  Report Type: Spontaneous
  Country: US (occurrence: US)
  Receive Date: 20221213
  Receipt Date: 20221213
  Transmission Date: 20230113
  Serious: Yes (Other)
  Sender: FDA-Public Use
  Company Number: US-JUBILANT CADISTA PHARMACEUTICALS-2022JUB00482

PATIENT
  Age: 76 Year
  Sex: Male

DRUGS (2)
  1. PREDNISONE [Suspect]
     Active Substance: PREDNISONE
     Indication: Anti-LRP2 nephropathy
     Dosage: UNK, TAPERED
  2. PREDNISONE [Suspect]
     Active Substance: PREDNISONE
     Dosage: 60 MG, EVERY 1 DAY

REACTIONS (1)
  - Nocardiosis [Unknown]
